FAERS Safety Report 5351212-4 (Version None)
Quarter: 2007Q2

REPORT INFORMATION
  Report Type: 
  Country: None (occurrence: None)
  Receive Date: 20070521
  Receipt Date: 20070328
  Transmission Date: 20071010
  Serious: No
  Sender: FDA-Public Use
  Company Number: WAES 0703USA05623

PATIENT
  Sex: Female

DRUGS (3)
  1. JANUVIA [Suspect]
     Indication: DIABETES MELLITUS
     Dosage: 50 MG/DAILY/PO
     Route: 048
  2. BYETTA [Concomitant]
  3. INSULIN [Concomitant]

REACTIONS (1)
  - RASH PRURITIC [None]
